FAERS Safety Report 8233741-9 (Version None)
Quarter: 2012Q1

REPORT INFORMATION
  Report Type: 
  Country: None (occurrence: None)
  Receive Date: 20120323
  Receipt Date: 20120323
  Transmission Date: 20120608
  Serious: Yes (Life-Threatening)
  Sender: FDA-Public Use
  Company Number: None

PATIENT
  Sex: Female
  Weight: 105.6881 kg

DRUGS (1)
  1. PRAVACHOL [Suspect]
     Dosage: 20 MG.
     Dates: start: 20071112

REACTIONS (2)
  - DYSPNOEA [None]
  - HEART RATE DECREASED [None]
